FAERS Safety Report 10052951 (Version 1)
Quarter: 2014Q1

REPORT INFORMATION
  Report Type: Spontaneous
  Country: GB (occurrence: None)
  Receive Date: 20140331
  Receipt Date: 20140331
  Transmission Date: 20141002
  Serious: Yes (Death, Life-Threatening)
  Sender: FDA-Public Use
  Company Number: 2014GB00272

PATIENT
  Sex: Female

DRUGS (2)
  1. EPIRUBICIN [Suspect]
     Indication: BREAST CANCER METASTATIC
     Dosage: ON DAY 1 OF 3 WEEKS CYCLE 15-MIN INFUSION
  2. VINFLUNINE [Suspect]
     Indication: BREAST CANCER METASTATIC
     Dosage: DAY 1EVERY 3 WEEKS GIVEN INTRAVENOUSLY AS A 20-MIN INFUSION
     Route: 042

REACTIONS (4)
  - Neutropenia [None]
  - Stomatitis [None]
  - Pulmonary oedema [None]
  - Toxicity to various agents [None]
